FAERS Safety Report 4305103-8 (Version None)
Quarter: 2004Q1

REPORT INFORMATION
  Report Type: 
  Country: None (occurrence: None)
  Receive Date: 20040224
  Receipt Date: 20040224
  Transmission Date: 20041129
  Serious: Yes (Other)
  Sender: FDA-Public Use
  Company Number: None

PATIENT
  Age: 63 Year
  Sex: Male
  Weight: 128.4 kg

DRUGS (4)
  1. FINASTERIDE [Suspect]
  2. IRBESARTAN [Concomitant]
  3. SIMVASTATIN [Concomitant]
  4. FEXOFENADINE HCL [Concomitant]

REACTIONS (1)
  - RASH [None]
